FAERS Safety Report 25813643 (Version 1)
Quarter: 2025Q3

REPORT INFORMATION
  Report Type: Spontaneous
  Country: RU (occurrence: RU)
  Receive Date: 20250917
  Receipt Date: 20250917
  Transmission Date: 20251020
  Serious: Yes (Hospitalization)
  Sender: AMGEN
  Company Number: RU-AMGEN-RUSSP2025180641

PATIENT
  Age: 15 Year
  Sex: Male

DRUGS (4)
  1. PROLIA [Suspect]
     Active Substance: DENOSUMAB
     Indication: Osteomyelitis
     Route: 065
     Dates: start: 2021
  2. TRAMADOL [Concomitant]
     Active Substance: TRAMADOL
     Indication: Osteomyelitis
     Dosage: 2 MILLIGRAM/KILOGRAM, TID
     Route: 030
     Dates: start: 2021
  3. VITAMIN D [Concomitant]
     Active Substance: VITAMIN D NOS
     Indication: Osteomyelitis
     Dosage: 3000 INTERNATIONAL UNIT, QD
     Route: 065
     Dates: start: 2021
  4. VITAMIN D [Concomitant]
     Active Substance: VITAMIN D NOS
     Dosage: 5000 INTERNATIONAL UNIT, QD
     Route: 065
     Dates: start: 2021

REACTIONS (2)
  - Osteomyelitis [Recovering/Resolving]
  - Off label use [Unknown]

NARRATIVE: CASE EVENT DATE: 20210101
